FAERS Safety Report 5377493-9 (Version None)
Quarter: 2007Q3

REPORT INFORMATION
  Report Type: 
  Country: None (occurrence: None)
  Receive Date: 20070703
  Receipt Date: 20070622
  Transmission Date: 20080115
  Serious: Yes (Hospitalization)
  Sender: FDA-Public Use
  Company Number: FR-ROCHE-496665

PATIENT
  Age: 62 Year
  Sex: Female

DRUGS (3)
  1. BONIVA [Suspect]
     Indication: OSTEOPOROSIS
     Route: 048
     Dates: start: 20070201
  2. CRESTOR [Concomitant]
     Dosage: DOSAGE REGIMEN: 1 DOSE PER DAY.
     Route: 048
     Dates: start: 20061101, end: 20070201
  3. VESICARE [Concomitant]
     Indication: URINARY INCONTINENCE
     Dosage: DOSAGE REGIMEN: 1 DOSE PER DAY. DRUG NAME: VESICAR
     Route: 048
     Dates: start: 20070201, end: 20070201

REACTIONS (1)
  - TOXIC SKIN ERUPTION [None]
